FAERS Safety Report 18197777 (Version 1)
Quarter: 2020Q3

REPORT INFORMATION
  Report Type: Spontaneous
  Country: US (occurrence: US)
  Receive Date: 20200826
  Receipt Date: 20200826
  Transmission Date: 20201103
  Serious: Yes (Hospitalization)
  Sender: FDA-Public Use
  Company Number: US-PFIZER INC-2020330250

PATIENT
  Age: 81 Year
  Sex: Female

DRUGS (1)
  1. PHENYTOIN SODIUM. [Suspect]
     Active Substance: PHENYTOIN SODIUM
     Indication: EPILEPSY
     Dosage: 500 MG, DAILY [200MG IN MORNING, AND 300MG AT NIGHT]
     Route: 048

REACTIONS (2)
  - Drug ineffective [Unknown]
  - Dizziness [Unknown]
